FAERS Safety Report 23766779 (Version 1)
Quarter: 2024Q2

REPORT INFORMATION
  Report Type: Other
  Country: CA (occurrence: CA)
  Receive Date: 20240422
  Receipt Date: 20240422
  Transmission Date: 20240716
  Serious: Yes (Hospitalization, Other)
  Sender: FDA-Public Use
  Company Number: CA-BIOCON BIOLOGICS LIMITED-BBL2024002583

PATIENT

DRUGS (21)
  1. ADALIMUMAB [Suspect]
     Active Substance: ADALIMUMAB\ISOPROPYL ALCOHOL
     Indication: Juvenile idiopathic arthritis
     Dosage: UNK (SOLUTION)
     Route: 058
  2. INFLIXIMAB [Suspect]
     Active Substance: INFLIXIMAB
     Indication: Juvenile idiopathic arthritis
     Dosage: 5 MG
     Route: 065
  3. INFLIXIMAB [Suspect]
     Active Substance: INFLIXIMAB
     Dosage: 3 MG, QW
     Route: 065
  4. ACTEMRA [Suspect]
     Active Substance: TOCILIZUMAB
     Indication: Juvenile idiopathic arthritis
     Dosage: 280 MG, QD
     Route: 065
  5. ACTEMRA [Suspect]
     Active Substance: TOCILIZUMAB
     Dosage: 280 MG
     Route: 065
  6. ENBREL [Suspect]
     Active Substance: ETANERCEPT
     Indication: Juvenile idiopathic arthritis
     Dosage: 12.5 MG
     Route: 065
  7. ENBREL [Suspect]
     Active Substance: ETANERCEPT
     Dosage: 25 MG
     Route: 065
  8. ANAKINRA [Suspect]
     Active Substance: ANAKINRA
     Indication: Juvenile idiopathic arthritis
     Dosage: 50 MG, QD
     Route: 065
  9. ANAKINRA [Suspect]
     Active Substance: ANAKINRA
     Dosage: 50 MG, QD
     Route: 065
  10. NAPROXEN [Suspect]
     Active Substance: NAPROXEN
     Indication: Juvenile idiopathic arthritis
     Dosage: UNK
     Route: 065
  11. TRIAMCINOLONE ACETONIDE [Suspect]
     Active Substance: TRIAMCINOLONE ACETONIDE
     Indication: Juvenile idiopathic arthritis
     Dosage: UNK
     Route: 014
  12. TRIAMCINOLONE [Suspect]
     Active Substance: TRIAMCINOLONE
     Indication: Juvenile idiopathic arthritis
     Dosage: UNK
     Route: 065
  13. SULFASALAZINE [Suspect]
     Active Substance: SULFASALAZINE
     Indication: Juvenile idiopathic arthritis
     Dosage: 250 MG, QD
     Route: 048
  14. PREDNISONE [Suspect]
     Active Substance: PREDNISONE
     Indication: Juvenile idiopathic arthritis
     Dosage: 5 MG, BID
     Route: 048
  15. PREDNISONE [Suspect]
     Active Substance: PREDNISONE
     Dosage: 5 MG, QD
     Route: 048
  16. PREDNISONE [Suspect]
     Active Substance: PREDNISONE
     Dosage: 3 MG, BID
     Route: 048
  17. ORENCIA [Suspect]
     Active Substance: ABATACEPT
     Indication: Juvenile idiopathic arthritis
     Dosage: 250 MG
     Route: 065
  18. METHOTREXATE [Suspect]
     Active Substance: METHOTREXATE
     Indication: Juvenile idiopathic arthritis
     Dosage: UNK UNK, QW
     Route: 065
  19. HUMAN IMMUNOGLOBULIN G [Suspect]
     Active Substance: HUMAN IMMUNOGLOBULIN G
     Indication: Juvenile idiopathic arthritis
     Dosage: 70 GRAM
     Route: 065
  20. HYDROXYCHLOROQUINE SULFATE [Suspect]
     Active Substance: HYDROXYCHLOROQUINE SULFATE
     Indication: Juvenile idiopathic arthritis
     Dosage: UNK
     Route: 048
  21. HUMIRA [Suspect]
     Active Substance: ADALIMUMAB
     Indication: Juvenile idiopathic arthritis
     Dosage: UNK
     Route: 058

REACTIONS (21)
  - Obesity [Unknown]
  - Polyarthritis [Unknown]
  - Drug intolerance [Unknown]
  - Condition aggravated [Unknown]
  - Human antichimeric antibody positive [Unknown]
  - Bone density decreased [Unknown]
  - Body height below normal [Unknown]
  - C-reactive protein increased [Unknown]
  - Adrenal insufficiency [Unknown]
  - Underdose [Unknown]
  - Juvenile idiopathic arthritis [Unknown]
  - Loss of personal independence in daily activities [Unknown]
  - Psoriasis [Unknown]
  - Red blood cell sedimentation rate increased [Unknown]
  - Synovitis [Unknown]
  - Arthritis [Unknown]
  - Antibody test positive [Unknown]
  - Diarrhoea [Unknown]
  - Septic shock [Unknown]
  - Vomiting [Unknown]
  - Off label use [Unknown]
